FAERS Safety Report 4651997-6 (Version None)
Quarter: 2005Q2

REPORT INFORMATION
  Report Type: 
  Country: None (occurrence: None)
  Receive Date: 20050502
  Receipt Date: 20050421
  Transmission Date: 20051028
  Serious: Yes (Death, Other)
  Sender: FDA-Public Use
  Company Number: 2005-126842-NL

PATIENT
  Age: 74 Year
  Sex: Female

DRUGS (5)
  1. MIRTAZAPINE [Suspect]
     Indication: ANXIETY
     Dosage: 60 MG QD
  2. MIRTAZAPINE [Suspect]
     Indication: MAJOR DEPRESSION
     Dosage: 60 MG QD
  3. OLANZAPINE [Suspect]
     Dosage: 10 MG QD
  4. BUSPIRONE HCL [Concomitant]
     Dosage: 45 MG BID
  5. CLONAZEPAM [Suspect]
     Dosage: 0.25 MG BID

REACTIONS (2)
  - DEPRESSED LEVEL OF CONSCIOUSNESS [None]
  - MEDICATION ERROR [None]
